FAERS Safety Report 5470857-4 (Version None)
Quarter: 2007Q3

REPORT INFORMATION
  Report Type: 
  Country: None (occurrence: None)
  Receive Date: 20070928
  Receipt Date: 20070917
  Transmission Date: 20080115
  Serious: Yes (Hospitalization)
  Sender: FDA-Public Use
  Company Number: FR-ELI_LILLY_AND_COMPANY-FR200709003112

PATIENT
  Age: 1 Day
  Sex: Female

DRUGS (3)
  1. PROZAC [Suspect]
     Dosage: 10 MG, DAILY (1/D)
     Route: 064
  2. ANAFRANIL [Concomitant]
     Route: 064
  3. LOVENOX [Concomitant]
     Route: 064

REACTIONS (6)
  - DRUG EXPOSURE DURING PREGNANCY [None]
  - GASTROOESOPHAGEAL REFLUX DISEASE [None]
  - MALAISE [None]
  - NEONATAL RESPIRATORY DEPRESSION [None]
  - RESPIRATORY DISORDER NEONATAL [None]
  - SOMNOLENCE NEONATAL [None]
